FAERS Safety Report 6645016-X (Version None)
Quarter: 2010Q1

REPORT INFORMATION
  Report Type: 
  Country: None (occurrence: None)
  Receive Date: 20100322
  Receipt Date: 20100308
  Transmission Date: 20100710
  Serious: Yes (Death, Hospitalization, Other)
  Sender: FDA-Public Use
  Company Number: JP-SANOFI-AVENTIS-2010SA011793

PATIENT
  Age: 70 Year
  Sex: Male

DRUGS (4)
  1. ELPLAT [Suspect]
     Indication: LARGE INTESTINE CARCINOMA
     Route: 041
  2. AVASTIN [Suspect]
     Indication: LARGE INTESTINE CARCINOMA
     Route: 041
  3. XELODA [Suspect]
     Indication: LARGE INTESTINE CARCINOMA
     Route: 048
  4. WARFARIN SODIUM [Suspect]
     Indication: LARGE INTESTINE CARCINOMA
     Route: 048

REACTIONS (5)
  - DEHYDRATION [None]
  - DRUG INTERACTION [None]
  - ENTEROCOLITIS [None]
  - INTERNATIONAL NORMALISED RATIO INCREASED [None]
  - MYOCARDIAL INFARCTION [None]
